FAERS Safety Report 6915352-8 (Version None)
Quarter: 2010Q3

REPORT INFORMATION
  Report Type: 
  Country: None (occurrence: None)
  Receive Date: 20100809
  Receipt Date: 20100119
  Transmission Date: 20110219
  Serious: No
  Sender: FDA-Public Use
  Company Number: US-ABBOTT-10P-163-0621841-00

PATIENT
  Sex: Female

DRUGS (1)
  1. DEPAKOTE ER [Suspect]
     Indication: MIGRAINE
     Dosage: LOW DOSE, NOT FURTHER SPECIFIED

REACTIONS (2)
  - LIMB INJURY [None]
  - PAIN IN EXTREMITY [None]
